FAERS Safety Report 9812283 (Version 2)
Quarter: 2014Q1

REPORT INFORMATION
  Report Type: Spontaneous
  Country: US (occurrence: US)
  Receive Date: 20140113
  Receipt Date: 20140121
  Transmission Date: 20141002
  Serious: No
  Sender: FDA-Public Use
  Company Number: US-BAYER-2014-002812

PATIENT
  Age: 62 Year
  Sex: Female

DRUGS (1)
  1. ALEVE CAPLET [Suspect]
     Indication: HEADACHE

REACTIONS (5)
  - Nausea [None]
  - Abdominal discomfort [None]
  - Gastric disorder [None]
  - Headache [None]
  - Drug ineffective [None]
